FAERS Safety Report 21658421 (Version 2)
Quarter: 2022Q4

REPORT INFORMATION
  Report Type: Report from Study
  Country: CA (occurrence: CA)
  Receive Date: 20221129
  Receipt Date: 20221220
  Transmission Date: 20230112
  Serious: Yes (Hospitalization, Other)
  Sender: FDA-Public Use
  Company Number: CA-OTSUKA-2022_050280

PATIENT
  Sex: Male

DRUGS (1)
  1. CEDAZURIDINE\DECITABINE [Suspect]
     Active Substance: CEDAZURIDINE\DECITABINE
     Indication: Myelodysplastic syndrome
     Dosage: 3 PILLS/CYCLE
     Route: 065
     Dates: start: 20221026

REACTIONS (6)
  - Transfusion [Recovered/Resolved]
  - Platelet transfusion [Recovered/Resolved]
  - Haematological infection [Unknown]
  - Pyrexia [Unknown]
  - Infection [Unknown]
  - Neutropenia [Unknown]
